FAERS Safety Report 18486106 (Version 2)
Quarter: 2020Q4

REPORT INFORMATION
  Report Type: Report from Study
  Country: US (occurrence: US)
  Receive Date: 20201110
  Receipt Date: 20201119
  Transmission Date: 20210114
  Serious: Yes (Death)
  Sender: FDA-Public Use
  Company Number: US-PFIZER INC-2020442021

PATIENT
  Age: 64 Year
  Sex: Female

DRUGS (3)
  1. PALBOCICLIB [Suspect]
     Active Substance: PALBOCICLIB
     Indication: LUNG ADENOCARCINOMA
     Dosage: 125 MG, 1X/DAY
     Route: 048
     Dates: start: 20200902, end: 20200922
  2. HEPARIN [Concomitant]
     Active Substance: HEPARIN SODIUM
     Indication: DEEP VEIN THROMBOSIS
     Dosage: UNK
  3. CB-839 [Suspect]
     Active Substance: TELAGLENASTAT
     Indication: LUNG ADENOCARCINOMA
     Dosage: 800 MG, 1X/DAY
     Route: 048
     Dates: start: 20200902, end: 20200929

REACTIONS (1)
  - Subdural haematoma [Fatal]

NARRATIVE: CASE EVENT DATE: 20201030
